FAERS Safety Report 9804959 (Version 1)
Quarter: 2014Q1

REPORT INFORMATION
  Report Type: Spontaneous
  Country: US (occurrence: US)
  Receive Date: 20140109
  Receipt Date: 20140109
  Transmission Date: 20141002
  Serious: Yes (Hospitalization)
  Sender: FDA-Public Use
  Company Number: US-009507513-1401USA001131

PATIENT
  Sex: Female

DRUGS (4)
  1. PRINIVIL [Suspect]
  2. ATORVASTATIN CALCIUM [Concomitant]
  3. ETHINYL ESTRADIOL [Concomitant]
  4. NORETHINDRONE [Concomitant]

REACTIONS (1)
  - Angioedema [Recovered/Resolved]
